FAERS Safety Report 12399702 (Version 1)
Quarter: 2016Q2

REPORT INFORMATION
  Report Type: Report from Study
  Country: US (occurrence: US)
  Receive Date: 20160524
  Receipt Date: 20160524
  Transmission Date: 20160815
  Serious: Yes (Death, Hospitalization)
  Sender: FDA-Public Use
  Company Number: US-UNITED THERAPEUTICS-UNT-2016-007884

PATIENT
  Age: 13 Year
  Sex: Female
  Weight: 38.5 kg

DRUGS (14)
  1. IRINOTECAN [Suspect]
     Active Substance: IRINOTECAN
     Indication: NEUROBLASTOMA
     Dosage: 50 MG/M2, OVER 90 MINUTES ON DAYS 1-5
     Route: 041
  2. TYLENOL WITH CODEINE [Concomitant]
     Active Substance: ACETAMINOPHEN\CODEINE PHOSPHATE
     Indication: PRODUCT USED FOR UNKNOWN INDICATION
  3. NEURONTIN [Concomitant]
     Active Substance: GABAPENTIN
     Indication: PRODUCT USED FOR UNKNOWN INDICATION
     Route: 048
  4. CH14.18 [Suspect]
     Active Substance: DINUTUXIMAB
     Dosage: UNK
     Dates: start: 20150121
  5. GM-CSF [Suspect]
     Active Substance: GRANULOCYTE-MACROPHAGE COLONY-STIMULATING FACTOR
     Indication: NEUROBLASTOMA
     Dosage: 250 ?G/M2, SQ OR IV OVER TWO HOURS ON DAYS 6-12
  6. SCOPOLAMINE                        /00008701/ [Concomitant]
     Active Substance: SCOPOLAMINE
     Indication: PRODUCT USED FOR UNKNOWN INDICATION
  7. MEGACE [Concomitant]
     Active Substance: MEGESTROL ACETATE
     Indication: PRODUCT USED FOR UNKNOWN INDICATION
  8. TEMOZOLOMIDE. [Suspect]
     Active Substance: TEMOZOLOMIDE
     Indication: NEUROBLASTOMA
     Dosage: 100 MG/M2, ON DAYS 1-5 (MAX DOSE = 200 MG)
     Route: 048
  9. BICITRA                            /00586801/ [Concomitant]
     Indication: PRODUCT USED FOR UNKNOWN INDICATION
  10. CH14.18 [Suspect]
     Active Substance: DINUTUXIMAB
     Indication: NEUROBLASTOMA
     Dosage: 17.5 MG/M2, QID OVER 10-20 HOURS ON DAYS 2-5
     Route: 041
     Dates: start: 20160318, end: 20160321
  11. POTASSIUM PHOSPHATE                /00493501/ [Concomitant]
     Indication: PRODUCT USED FOR UNKNOWN INDICATION
  12. DIFLUCAN [Concomitant]
     Active Substance: FLUCONAZOLE
     Indication: PRODUCT USED FOR UNKNOWN INDICATION
  13. ZOFRAN [Concomitant]
     Active Substance: ONDANSETRON HYDROCHLORIDE
     Indication: PRODUCT USED FOR UNKNOWN INDICATION
  14. FLAGYL [Concomitant]
     Active Substance: METRONIDAZOLE\METRONIDAZOLE HYDROCHLORIDE
     Indication: PRODUCT USED FOR UNKNOWN INDICATION

REACTIONS (10)
  - Metabolic disorder [Fatal]
  - Headache [Unknown]
  - Dyspnoea [Unknown]
  - Lethargy [Unknown]
  - Hypotension [Unknown]
  - Respiratory arrest [Fatal]
  - Vision blurred [Unknown]
  - Syncope [Unknown]
  - Death [Fatal]
  - Cardiac arrest [Fatal]

NARRATIVE: CASE EVENT DATE: 201603
